FAERS Safety Report 23093403 (Version 2)
Quarter: 2023Q4

REPORT INFORMATION
  Report Type: Report from Study
  Country: US (occurrence: US)
  Receive Date: 20231022
  Receipt Date: 20231031
  Transmission Date: 20240110
  Serious: Yes (Death, Other)
  Sender: FDA-Public Use
  Company Number: US-ABBVIE-5460273

PATIENT
  Age: 81 Year
  Sex: Female
  Weight: 58.059 kg

DRUGS (7)
  1. CREON [Suspect]
     Active Substance: PANCRELIPASE AMYLASE\PANCRELIPASE LIPASE\PANCRELIPASE PROTEASE
     Indication: Pancreatic failure
     Dosage: FORM STRENGTH: 36000 UNIT?2 WITH MEALS OR 1 WITH SNACK OR 6X1 DAY
     Route: 048
     Dates: start: 2022, end: 20231011
  2. HUMULIN NOS [Concomitant]
     Active Substance: INSULIN HUMAN
     Indication: Diabetes mellitus
  3. DICYCLOMINE [Concomitant]
     Active Substance: DICYCLOMINE HYDROCHLORIDE
     Indication: Irritable bowel syndrome
  4. GLIPIZIDE [Concomitant]
     Active Substance: GLIPIZIDE
     Indication: Diabetes mellitus
  5. BUDESONIDE [Concomitant]
     Active Substance: BUDESONIDE
     Indication: Diarrhoea
  6. METAMIZOLE [Concomitant]
     Active Substance: METAMIZOLE
     Indication: Product used for unknown indication
  7. BUMETANIDE [Concomitant]
     Active Substance: BUMETANIDE
     Indication: Product used for unknown indication

REACTIONS (13)
  - Internal haemorrhage [Fatal]
  - Acute myocardial infarction [Fatal]
  - Asthenia [Not Recovered/Not Resolved]
  - Nausea [Not Recovered/Not Resolved]
  - Balance disorder [Not Recovered/Not Resolved]
  - Dyspnoea [Not Recovered/Not Resolved]
  - Tachycardia [Fatal]
  - Loss of consciousness [Not Recovered/Not Resolved]
  - Decreased appetite [Not Recovered/Not Resolved]
  - Haematochezia [Fatal]
  - Renal failure [Fatal]
  - Anaemia [Fatal]
  - Hypovolaemic shock [Fatal]

NARRATIVE: CASE EVENT DATE: 20230901
